FAERS Safety Report 5226954-1 (Version None)
Quarter: 2007Q1

REPORT INFORMATION
  Report Type: 
  Country: None (occurrence: None)
  Receive Date: 20070202
  Receipt Date: 20070123
  Transmission Date: 20070707
  Serious: Yes (Other)
  Sender: FDA-Public Use
  Company Number: PHBS2007JP01582

PATIENT

DRUGS (2)
  1. NORVASC [Concomitant]
  2. DIOVAN [Suspect]
     Route: 048

REACTIONS (1)
  - HAEMOPTYSIS [None]
